FAERS Safety Report 9972889 (Version 2)
Quarter: 2014Q1

REPORT INFORMATION
  Report Type: Spontaneous
  Country: US (occurrence: US)
  Receive Date: 20140306
  Receipt Date: 20140328
  Transmission Date: 20141002
  Serious: Yes (Other)
  Sender: FDA-Public Use
  Company Number: US-PFIZER INC-2014061778

PATIENT
  Age: 59 Year
  Sex: Female

DRUGS (1)
  1. ESTRING [Suspect]
     Dosage: UNK
     Dates: start: 20130428, end: 20130801

REACTIONS (1)
  - Urinary tract infection [Unknown]
